FAERS Safety Report 9861093 (Version 1)
Quarter: 2014Q1

REPORT INFORMATION
  Report Type: Spontaneous
  Country: IT (occurrence: None)
  Receive Date: 20140130
  Receipt Date: 20140130
  Transmission Date: 20141002
  Serious: Yes (Congenital Anomaly)
  Sender: FDA-Public Use
  Company Number: 2014AP000868

PATIENT
  Sex: Female

DRUGS (1)
  1. MINOXIDIL TOPICAL SOLUTION USP, 5% (EXTRA STRENGTH FOR MEN) (ALPHARMA) [Suspect]
     Indication: ALOPECIA
     Route: 061

REACTIONS (3)
  - Maternal drugs affecting foetus [None]
  - Angiogenesis biomarker increased [None]
  - Capillary disorder [None]
